FAERS Safety Report 23294252 (Version 2)
Quarter: 2023Q4

REPORT INFORMATION
  Report Type: Spontaneous
  Country: US (occurrence: US)
  Receive Date: 20231213
  Receipt Date: 20231219
  Transmission Date: 20240109
  Serious: Yes (Death, Hospitalization, Other)
  Sender: FDA-Public Use
  Company Number: US-009507513-2312USA003842

PATIENT
  Age: 70 Year
  Sex: Female

DRUGS (1)
  1. KEYTRUDA [Suspect]
     Active Substance: PEMBROLIZUMAB
     Indication: Triple negative breast cancer
     Dosage: UNK
     Route: 042
     Dates: start: 2022

REACTIONS (4)
  - Colitis [Fatal]
  - Pneumonitis [Fatal]
  - Adverse reaction [Fatal]
  - Ill-defined disorder [Fatal]

NARRATIVE: CASE EVENT DATE: 20220101
